FAERS Safety Report 10373119 (Version 2)
Quarter: 2014Q3

REPORT INFORMATION
  Report Type: Spontaneous
  Country: US (occurrence: US)
  Receive Date: 20140808
  Receipt Date: 20140808
  Transmission Date: 20150326
  Serious: Yes (Other)
  Sender: FDA-Public Use
  Company Number: US-BRISTOL-MYERS SQUIBB COMPANY-20034377

PATIENT
  Age: 81 Year
  Sex: Male
  Weight: 91.97 kg

DRUGS (14)
  1. OMEPRAZOLE. [Concomitant]
     Active Substance: OMEPRAZOLE
     Route: 048
  2. PRAVASTATIN SODIUM. [Concomitant]
     Active Substance: PRAVASTATIN SODIUM
     Dosage: TABS
     Route: 048
  3. VICODIN [Concomitant]
     Active Substance: ACETAMINOPHEN\HYDROCODONE BITARTRATE
     Indication: PAIN
     Dosage: 1DF: 5-500MG TABS, 1 TAB 4 TIMES/DAY
     Route: 048
  4. SPIRIVA [Concomitant]
     Active Substance: TIOTROPIUM BROMIDE MONOHYDRATE
     Dosage: CAPS
  5. ASPIRIN. [Concomitant]
     Active Substance: ASPIRIN
     Route: 048
  6. AMOXICILLIN. [Concomitant]
     Active Substance: AMOXICILLIN
     Indication: INFECTION
     Dosage: 1 TAB THREE TIMES/DAY
  7. FLOMAX [Concomitant]
     Active Substance: TAMSULOSIN HYDROCHLORIDE
     Dosage: 1 CAPS EVERY EVENING
     Route: 048
  8. PRAMIPEXOLE HCL [Concomitant]
     Active Substance: PRAMIPEXOLE
     Dosage: TABS
     Route: 048
  9. GUAIFENESIN + CODEINE [Concomitant]
     Indication: COUGH
     Dosage: 1DF: 5-10ML ORAL Q4-6 HRS?STRENGTH:100-10 MG/5ML SYRUP
     Route: 048
  10. SPRYCEL [Suspect]
     Active Substance: DASATINIB
     Indication: CHRONIC MYELOID LEUKAEMIA
     Dosage: DOSE REDUCED 50MG FEB2012?RESTARTED 80MG JUN13, ?INCSD 100MG AUG13
     Route: 048
     Dates: start: 20120105
  11. MULTIVITAMIN [Concomitant]
     Active Substance: VITAMINS
     Dosage: DAILY VALUE MULTIVITAMIN TABS
     Route: 048
  12. ALLOPURINOL. [Concomitant]
     Active Substance: ALLOPURINOL
     Dosage: TABS, 1 TAB EVERY DAY/MONTH
  13. FINASTERIDE. [Concomitant]
     Active Substance: FINASTERIDE
     Dosage: TABS
     Route: 048
  14. FISH OIL [Concomitant]
     Active Substance: FISH OIL

REACTIONS (3)
  - Cellulitis [Unknown]
  - Malignant neoplasm progression [Unknown]
  - Anaemia [Unknown]

NARRATIVE: CASE EVENT DATE: 20120131
